FAERS Safety Report 9519633 (Version 1)
Quarter: 2013Q3

REPORT INFORMATION
  Report Type: Report from Study
  Country: US (occurrence: US)
  Receive Date: 20130912
  Receipt Date: 20130912
  Transmission Date: 20140515
  Serious: Yes (Other)
  Sender: FDA-Public Use
  Company Number: PHHY2013US097216

PATIENT
  Age: 48 Year
  Sex: Female

DRUGS (4)
  1. GILENYA [Suspect]
     Indication: MULTIPLE SCLEROSIS
  2. IBUPROFEN [Concomitant]
     Indication: HAND FRACTURE
     Dates: start: 20130525
  3. VITAMIN B12 [Concomitant]
     Indication: VITAMIN B12 DEFICIENCY
     Dates: start: 20121116
  4. MACRODANTIN [Concomitant]
     Indication: URINARY TRACT INFECTION
     Dates: start: 20121115, end: 20121122

REACTIONS (3)
  - Hand fracture [Unknown]
  - Osteoporosis [Unknown]
  - Vitamin B12 deficiency [Recovered/Resolved]
